FAERS Safety Report 9133865 (Version 2)
Quarter: 2014Q2

REPORT INFORMATION
  Report Type: Report from Study
  Country: BE (occurrence: BE)
  Receive Date: 20130303
  Receipt Date: 20140317
  Transmission Date: 20141212
  Serious: Yes (Other)
  Sender: FDA-Public Use
  Company Number: PHHY2013BE011415

PATIENT
  Age: 46 Year
  Sex: Male

DRUGS (1)
  1. GILENYA [Suspect]
     Indication: MULTIPLE SCLEROSIS
     Dosage: 0.5 MG, QD
     Route: 048
     Dates: start: 20120630, end: 20130130

REACTIONS (5)
  - Central nervous system lesion [Unknown]
  - Sensory loss [Unknown]
  - Feeling abnormal [Unknown]
  - Dizziness [Unknown]
  - Drug ineffective [Unknown]
